FAERS Safety Report 16639194 (Version 3)
Quarter: 2020Q1

REPORT INFORMATION
  Report Type: Spontaneous
  Country: JP (occurrence: JP)
  Receive Date: 20190726
  Receipt Date: 20200108
  Transmission Date: 20200409
  Serious: Yes (Hospitalization, Other)
  Sender: FDA-Public Use
  Company Number: JP-BRISTOL-MYERS SQUIBB COMPANY-BMS-2019-072296

PATIENT
  Age: 65 Year
  Sex: Female
  Weight: 50 kg

DRUGS (10)
  1. MOBIC [Concomitant]
     Active Substance: MELOXICAM
     Indication: RHEUMATOID ARTHRITIS
     Dosage: 10 MILLIGRAM, QD
     Route: 048
  2. OPALMON [Concomitant]
     Active Substance: LIMAPROST
     Indication: LUMBAR SPINAL STENOSIS
     Dosage: 15 MICROGRAM, TID
     Route: 048
     Dates: start: 20140801
  3. ORENCIA [Suspect]
     Active Substance: ABATACEPT
     Indication: RHEUMATOID ARTHRITIS
     Dosage: 500 MILLIGRAM
     Route: 041
     Dates: start: 20110901
  4. METHYCOBAL [Concomitant]
     Active Substance: METHYLCOBALAMIN
     Indication: NEUROPATHY PERIPHERAL
     Dosage: 1000 MICROGRAM, BID
     Route: 048
  5. METOLATE [Concomitant]
     Active Substance: METHOTREXATE
     Indication: RHEUMATOID ARTHRITIS
     Dosage: 2 MILLIGRAM, QWK
     Route: 048
  6. BREDININ [Concomitant]
     Active Substance: MIZORIBINE
     Indication: RHEUMATOID ARTHRITIS
     Dosage: 100 MILLIGRAM, BID
     Route: 048
  7. TEPRENONE [Concomitant]
     Active Substance: TEPRENONE
     Indication: PROPHYLAXIS
     Dosage: 100 MILLIGRAM, BID
     Route: 048
  8. AZULFIDINE EN-TABS [Concomitant]
     Active Substance: SULFASALAZINE
     Indication: RHEUMATOID ARTHRITIS
     Dosage: 1000 MILLIGRAM, BID
     Route: 048
  9. FOLIAMIN [Concomitant]
     Active Substance: FOLIC ACID
     Indication: PROPHYLAXIS
     Dosage: 5 MILLIGRAM, QWK
     Route: 048
  10. ORENCIA [Suspect]
     Active Substance: ABATACEPT
     Indication: PRODUCT USED FOR UNKNOWN INDICATION
     Dosage: UNK
     Route: 065
     Dates: start: 201509

REACTIONS (1)
  - Squamous cell carcinoma of lung [Recovering/Resolving]

NARRATIVE: CASE EVENT DATE: 20150311
